FAERS Safety Report 24331065 (Version 1)
Quarter: 2024Q3

REPORT INFORMATION
  Report Type: Spontaneous
  Country: US (occurrence: US)
  Receive Date: 20240918
  Receipt Date: 20240918
  Transmission Date: 20241017
  Serious: Yes (Other)
  Sender: BAUSCH AND LOMB
  Company Number: US-BAUSCHBL-2024BNL033254

PATIENT
  Age: 62 Year
  Sex: Female

DRUGS (2)
  1. BRIMONIDINE TARTRATE [Suspect]
     Active Substance: BRIMONIDINE TARTRATE
     Indication: Postoperative care
     Route: 065
     Dates: start: 20230912, end: 202405
  2. BRIMONIDINE TARTRATE [Suspect]
     Active Substance: BRIMONIDINE TARTRATE
     Indication: Product use in unapproved indication

REACTIONS (6)
  - Blindness [Not Recovered/Not Resolved]
  - Retinal disorder [Unknown]
  - Eyelid margin crusting [Unknown]
  - Eye pruritus [Unknown]
  - Patient dissatisfaction with treatment [Unknown]
  - Product use in unapproved indication [Unknown]

NARRATIVE: CASE EVENT DATE: 20230912
